FAERS Safety Report 9189197 (Version 1)
Quarter: 2013Q1

REPORT INFORMATION
  Report Type: Spontaneous
  Country: US (occurrence: None)
  Receive Date: 20130322
  Receipt Date: 20130322
  Transmission Date: 20140127
  Serious: Yes (Death)
  Sender: FDA-Public Use
  Company Number: 2013NEUSA00167

PATIENT
  Age: 83 Year
  Sex: Female

DRUGS (16)
  1. NUEDEXTA [Suspect]
     Indication: DEMENTIA
     Dates: start: 20130201, end: 201302
  2. NUEDEXTA [Suspect]
     Indication: BEHAVIOURAL AND PSYCHIATRIC SYMPTOMS OF DEMENTIA
     Dates: start: 20130201, end: 201302
  3. RISPERIDONE (RISPERIDONE) [Suspect]
     Indication: BEHAVIOURAL AND PSYCHIATRIC SYMPTOMS OF DEMENTIA
     Dates: start: 20121202, end: 20130301
  4. DIVALPROEX (VALPROATE SEMISODIUM) [Suspect]
     Indication: BEHAVIOURAL AND PSYCHIATRIC SYMPTOMS OF DEMENTIA
     Dates: start: 20130121
  5. EXELON (RIVASTIGMINE TARTRATE) [Concomitant]
  6. AMLODIPINE (AMLODIPINE) [Concomitant]
  7. LEVOTHYROXINE (LEVOTHYROXINE) [Concomitant]
  8. CLONIDINE (CLONIDINE) [Concomitant]
  9. MIRALAX [Concomitant]
  10. 1) PAXIL (PAROXETINE HYDROCHLORIDE) [Concomitant]
  11. 1) PLAVIX (CLOPIDOGREL BISULFATE) [Concomitant]
  12. 1) POTASSIUM (POTASSIUM) [Concomitant]
  13. 1) PRAVASTATIN (PRAVASTATIN) [Concomitant]
  14. 1) FUROSEMIDE (FUROSEMIDE) [Concomitant]
  15. 1) NORCO (HYDROCODONE BITARTRATE, PARACETAMOL) [Concomitant]
  16. 1) NAMENDA (MEMANTINE HYDROCHLORIDE) [Concomitant]

REACTIONS (4)
  - Fatigue [None]
  - Lethargy [None]
  - Blood pressure increased [None]
  - Oedema peripheral [None]
